FAERS Safety Report 6178673-5 (Version None)
Quarter: 2009Q2

REPORT INFORMATION
  Report Type: 
  Country: None (occurrence: None)
  Receive Date: 20090430
  Receipt Date: 20090422
  Transmission Date: 20091009
  Serious: Yes (Hospitalization)
  Sender: FDA-Public Use
  Company Number: 2009SP004420

PATIENT
  Age: 53 Year
  Sex: Male

DRUGS (2)
  1. PEG-INTRON [Suspect]
     Indication: HEPATITIS C
     Dosage: SC
     Route: 058
     Dates: start: 20081112, end: 20090301
  2. RIBASPHERE [Suspect]
     Indication: HEPATITIS C
     Dates: start: 20081112

REACTIONS (6)
  - ANGER [None]
  - DEPRESSION [None]
  - DRUG DOSE OMISSION [None]
  - GASTRIC ULCER [None]
  - OESOPHAGEAL ULCER [None]
  - VOMITING [None]
